FAERS Safety Report 7789060-8 (Version None)
Quarter: 2011Q3

REPORT INFORMATION
  Report Type: 
  Country: None (occurrence: None)
  Receive Date: 20110930
  Receipt Date: 20110922
  Transmission Date: 20111222
  Serious: Yes (Hospitalization)
  Sender: FDA-Public Use
  Company Number: CH-JNJFOC-20110908443

PATIENT
  Age: 16 Year
  Sex: Female

DRUGS (3)
  1. VERMOX [Suspect]
     Indication: ENTEROBIASIS
     Dosage: DURING LAST 7 MONTHS
     Route: 048
     Dates: start: 20110101
  2. OMEPRAZOLE [Concomitant]
     Route: 048
  3. MINERVA [Concomitant]
     Route: 048

REACTIONS (6)
  - CHROMATURIA [None]
  - INTERNATIONAL NORMALISED RATIO INCREASED [None]
  - OCULAR ICTERUS [None]
  - ALANINE AMINOTRANSFERASE INCREASED [None]
  - BLOOD CHOLINESTERASE DECREASED [None]
  - ABDOMINAL PAIN UPPER [None]
